FAERS Safety Report 11452681 (Version 1)
Quarter: 2015Q3

REPORT INFORMATION
  Report Type: Spontaneous
  Country: US (occurrence: US)
  Receive Date: 20150831
  Receipt Date: 20150831
  Transmission Date: 20151125
  Serious: No
  Sender: FDA-Public Use
  Company Number: US-ELI_LILLY_AND_COMPANY-US200910004202

PATIENT
  Sex: Female

DRUGS (5)
  1. CYMBALTA [Suspect]
     Active Substance: DULOXETINE HYDROCHLORIDE
     Dosage: 20 MG, EACH EVENING
     Dates: start: 20091010
  2. CYMBALTA [Suspect]
     Active Substance: DULOXETINE HYDROCHLORIDE
     Indication: DEPRESSION
     Dosage: UNK, UNK
     Dates: start: 200802, end: 200806
  3. FIORICET [Concomitant]
     Active Substance: ACETAMINOPHEN\BUTALBITAL\CAFFEINE
  4. PHENERGAN [Concomitant]
     Active Substance: PROMETHAZINE HYDROCHLORIDE
  5. MIRALAX [Concomitant]
     Active Substance: POLYETHYLENE GLYCOL 3350

REACTIONS (11)
  - Ear pain [Recovering/Resolving]
  - Nausea [Recovering/Resolving]
  - Lymphadenopathy [Recovering/Resolving]
  - Oropharyngeal pain [Recovering/Resolving]
  - Drug withdrawal syndrome [Recovered/Resolved]
  - Dizziness [Recovering/Resolving]
  - Intentional product misuse [Unknown]
  - Constipation [Not Recovered/Not Resolved]
  - Pharyngeal oedema [Recovering/Resolving]
  - Headache [Recovering/Resolving]
  - Dysphagia [Recovering/Resolving]

NARRATIVE: CASE EVENT DATE: 200806
